FAERS Safety Report 6985523 (Version 2)
Quarter: 2014Q2

REPORT INFORMATION
  Report Type: Spontaneous
  Country: US (occurrence: US)
  Receive Date: 20090504
  Receipt Date: 20140424
  Transmission Date: 20141212
  Serious: Yes (Hospitalization)
  Sender: FDA-Public Use
  Company Number: US-ALEXION-A200900035

PATIENT
  Sex: 0

DRUGS (22)
  1. SOLIRIS [Suspect]
     Indication: PAROXYSMAL NOCTURNAL HAEMOGLOBINURIA
     Dosage: 600 MG, QW
     Route: 042
     Dates: start: 20080506, end: 20080527
  2. SOLIRIS [Suspect]
     Dosage: 900 MG, Q2W
     Route: 042
     Dates: start: 20080603
  3. IRON [Concomitant]
     Indication: MINERAL SUPPLEMENTATION
     Dosage: UNK, QD
     Route: 048
     Dates: start: 20080401
  4. FOLIC ACID [Concomitant]
     Indication: FOLATE DEFICIENCY
     Dosage: 2 PILLS, QD
     Route: 048
     Dates: start: 20080401
  5. ASPIRIN [Concomitant]
     Indication: PRODUCT USED FOR UNKNOWN INDICATION
     Dosage: 81 MG, QD
     Route: 048
  6. B COMPLEX                          /00212701/ [Concomitant]
     Indication: PRODUCT USED FOR UNKNOWN INDICATION
     Dosage: UNK
     Route: 048
  7. NASONEX [Concomitant]
     Indication: PRODUCT USED FOR UNKNOWN INDICATION
     Dosage: UNK
     Route: 045
  8. MULTIVITAMIN                       /00831701/ [Concomitant]
     Indication: PRODUCT USED FOR UNKNOWN INDICATION
     Dosage: UNK
     Route: 048
  9. PREDNISONE [Concomitant]
     Indication: IMMUNOSUPPRESSANT DRUG LEVEL
     Dosage: 10 MG, QOD
     Route: 065
     Dates: start: 20080401, end: 20080630
  10. PRILOSEC                           /00661201/ [Concomitant]
     Indication: PRODUCT USED FOR UNKNOWN INDICATION
     Dosage: UNK, QD
     Route: 065
     Dates: start: 20080401, end: 20080630
  11. BABY ASPIRIN [Concomitant]
     Indication: ANTICOAGULANT THERAPY
     Dosage: UNK, QD
     Route: 065
     Dates: start: 20080401
  12. VITAMIN D                          /00107901/ [Concomitant]
     Indication: PRODUCT USED FOR UNKNOWN INDICATION
     Dosage: UNK, QD
     Route: 065
     Dates: start: 20080401
  13. SILVER CENTRUM [Concomitant]
     Route: 065
  14. ACETAMINOPHEN [Concomitant]
     Indication: PAIN
     Dosage: 650 MG, UNK
     Route: 065
     Dates: start: 20131022
  15. DIPHENHYDRAMINE [Concomitant]
     Indication: HYPERSENSITIVITY
     Dosage: 25 MG, PRN
     Route: 042
     Dates: start: 20131022
  16. EPINEPHRINE [Concomitant]
     Indication: HYPERSENSITIVITY
     Dosage: UNK, PRN
     Route: 042
     Dates: start: 20131022
  17. FAMOTIDINE [Concomitant]
     Indication: HYPERSENSITIVITY
     Dosage: 20 MG, PRN
     Route: 042
     Dates: start: 20131022
  18. MEPERIDINE                         /00016301/ [Concomitant]
     Indication: CHILLS
     Dosage: 12.5 MG, PRN
     Route: 042
     Dates: start: 20131022
  19. MEPERIDINE                         /00016301/ [Concomitant]
     Indication: PYREXIA
  20. METHYLPREDNISOLONE SODIUM SUCCINATE [Concomitant]
     Indication: STEROID THERAPY
     Dosage: 50 MG, PRN
     Route: 042
     Dates: start: 20131022
  21. OXYGEN [Concomitant]
     Indication: PRODUCT USED FOR UNKNOWN INDICATION
     Dosage: 1 L, UNK
     Route: 065
     Dates: start: 20131022
  22. PROCHLORPERAZINE MALEATE [Concomitant]
     Indication: NAUSEA
     Dosage: 10 MG, PRN
     Route: 065
     Dates: start: 20131022

REACTIONS (5)
  - Gastrointestinal disorder [Recovered/Resolved]
  - Vomiting [Recovered/Resolved]
  - Nausea [Recovered/Resolved]
  - Gastrointestinal disorder [Recovered/Resolved]
  - Blood urine present [Recovered/Resolved]
